FAERS Safety Report 4376391-7 (Version None)
Quarter: 2004Q2

REPORT INFORMATION
  Report Type: 
  Country: None (occurrence: None)
  Receive Date: 20040610
  Receipt Date: 20040610
  Transmission Date: 20050107
  Serious: No
  Sender: FDA-Public Use
  Company Number: None

PATIENT
  Age: 55 Year
  Sex: Male
  Weight: 68.0396 kg

DRUGS (2)
  1. PEGASYS [Suspect]
     Indication: HEPATITIS C
     Dosage: 1 ML PER WEEK INTRAMUSCULAR
     Route: 030
     Dates: start: 20040315, end: 20040515
  2. COPEGUS [Suspect]
     Indication: HEPATITIS C
     Dosage: 35 TABLET PER WEEK ORAL
     Route: 048
     Dates: start: 20040315, end: 20040515

REACTIONS (5)
  - COUGH [None]
  - INFECTION [None]
  - MUSCLE ATROPHY [None]
  - ONYCHOMADESIS [None]
  - RECTAL ABSCESS [None]
